FAERS Safety Report 18260671 (Version 1)
Quarter: 2020Q3

REPORT INFORMATION
  Report Type: Spontaneous
  Country: US (occurrence: US)
  Receive Date: 20200914
  Receipt Date: 20200914
  Transmission Date: 20201103
  Serious: No
  Sender: FDA-Public Use
  Company Number: US-BIOGEN-2020BI00922435

PATIENT
  Sex: Female

DRUGS (18)
  1. TRAZODONE HYDROCHLORIDE. [Concomitant]
     Active Substance: TRAZODONE HYDROCHLORIDE
     Route: 065
  2. ISOSORBIDE NITRATE [Concomitant]
     Active Substance: ISOSORBIDE MONONITRATE
     Route: 065
  3. NEXIUM [Concomitant]
     Active Substance: ESOMEPRAZOLE MAGNESIUM
     Route: 065
  4. NOVOLOG [Concomitant]
     Active Substance: INSULIN ASPART
     Route: 065
  5. ZYRTEC [Concomitant]
     Active Substance: CETIRIZINE HYDROCHLORIDE
     Route: 065
  6. SEROQUEL [Concomitant]
     Active Substance: QUETIAPINE FUMARATE
     Route: 065
  7. OXYCODONE HYDROCHLORIDE. [Concomitant]
     Active Substance: OXYCODONE HYDROCHLORIDE
     Route: 065
  8. LISINOPRIL. [Concomitant]
     Active Substance: LISINOPRIL
     Route: 065
  9. TYSABRI [Suspect]
     Active Substance: NATALIZUMAB
     Indication: PRODUCT USED FOR UNKNOWN INDICATION
     Route: 042
     Dates: start: 201207
  10. FENTANYL. [Concomitant]
     Active Substance: FENTANYL
     Route: 065
  11. PATANOL [Concomitant]
     Active Substance: OLOPATADINE HYDROCHLORIDE
     Route: 065
  12. KLONOPIN [Concomitant]
     Active Substance: CLONAZEPAM
     Route: 065
  13. MAXZIDE [Concomitant]
     Active Substance: HYDROCHLOROTHIAZIDE\TRIAMTERENE
     Route: 065
  14. AMBIEN [Concomitant]
     Active Substance: ZOLPIDEM TARTRATE
     Route: 065
  15. LANTUS [Concomitant]
     Active Substance: INSULIN GLARGINE
     Route: 065
  16. LOPRESSOR [Concomitant]
     Active Substance: METOPROLOL TARTRATE
     Route: 065
  17. VESICARE [Concomitant]
     Active Substance: SOLIFENACIN SUCCINATE
     Route: 065
  18. ALBUTEROL. [Concomitant]
     Active Substance: ALBUTEROL
     Route: 065

REACTIONS (7)
  - Abdominal discomfort [Unknown]
  - Headache [Unknown]
  - Malaise [Unknown]
  - Pain [Unknown]
  - Feeling of body temperature change [Unknown]
  - Nausea [Unknown]
  - Cough [Unknown]
